FAERS Safety Report 11683147 (Version 1)
Quarter: 2015Q4

REPORT INFORMATION
  Report Type: Report from Study
  Country: US (occurrence: US)
  Receive Date: 20151029
  Receipt Date: 20151029
  Transmission Date: 20160304
  Serious: Yes (Other)
  Sender: FDA-Public Use
  Company Number: US-PFIZER INC-2015347941

PATIENT

DRUGS (6)
  1. GABAPENTIN. [Suspect]
     Active Substance: GABAPENTIN
     Dosage: 1200 MG, UNK (DAYS 7 TO 10)
  2. GABAPENTIN. [Suspect]
     Active Substance: GABAPENTIN
     Dosage: 1800 MG, DAILY (DAY 15)
  3. GABAPENTIN. [Suspect]
     Active Substance: GABAPENTIN
     Dosage: 1500 MG, UNK (DAYS 11 TO 14)
  4. GABAPENTIN. [Suspect]
     Active Substance: GABAPENTIN
     Indication: NEURALGIA
     Dosage: 300 MG, UNK (DAY 1)
  5. GABAPENTIN. [Suspect]
     Active Substance: GABAPENTIN
     Dosage: 600 MG, UNK (DAY 2)
  6. GABAPENTIN. [Suspect]
     Active Substance: GABAPENTIN
     Dosage: 900 MG, UNK ((DAY 3 TO 6)

REACTIONS (1)
  - Confusional state [Unknown]
